FAERS Safety Report 15340625 (Version 3)
Quarter: 2018Q4

REPORT INFORMATION
  Report Type: Spontaneous
  Country: US (occurrence: US)
  Receive Date: 20180831
  Receipt Date: 20181009
  Transmission Date: 20190204
  Serious: Yes (Hospitalization)
  Sender: FDA-Public Use
  Company Number: US-ACTELION-A-US2018-177729

PATIENT
  Age: 80 Year
  Sex: Female

DRUGS (1)
  1. OPSUMIT [Suspect]
     Active Substance: MACITENTAN
     Indication: PRODUCT USED FOR UNKNOWN INDICATION
     Dosage: 10 MG, QD
     Route: 048

REACTIONS (6)
  - Cardiac pacemaker insertion [Recovered/Resolved]
  - Oedema [Unknown]
  - Product dose omission [Unknown]
  - Blood pressure abnormal [Unknown]
  - Oedema peripheral [Unknown]
  - Confusional state [Unknown]

NARRATIVE: CASE EVENT DATE: 20180816
